FAERS Safety Report 12884809 (Version 1)
Quarter: 2016Q4

REPORT INFORMATION
  Report Type: Spontaneous
  Country: US (occurrence: US)
  Receive Date: 20161026
  Receipt Date: 20161026
  Transmission Date: 20170207
  Serious: Yes (Other)
  Sender: FDA-Public Use
  Company Number: US-TEVA-707405USA

PATIENT
  Age: 77 Year
  Sex: Female
  Weight: 63.56 kg

DRUGS (8)
  1. METOPROLOL. [Concomitant]
     Active Substance: METOPROLOL
     Indication: HYPERTENSION
  2. COENZYME Q10 [Concomitant]
     Active Substance: UBIDECARENONE
  3. Z-PACK [Suspect]
     Active Substance: AZITHROMYCIN DIHYDRATE
     Route: 065
  4. SINEMET [Concomitant]
     Active Substance: CARBIDOPA\LEVODOPA
     Indication: PARKINSON^S DISEASE
  5. AZILECT [Suspect]
     Active Substance: RASAGILINE MESYLATE
     Indication: PARKINSON^S DISEASE
     Dates: start: 2000
  6. NORVASC [Concomitant]
     Active Substance: AMLODIPINE BESYLATE
     Indication: HYPERTENSION
  7. ZINC [Concomitant]
     Active Substance: ZINC\ZINC CHLORIDE
  8. VITAMIN D [Concomitant]
     Active Substance: CHOLECALCIFEROL

REACTIONS (5)
  - Parkinson^s disease [Unknown]
  - Urticaria [Unknown]
  - Wheezing [Unknown]
  - Viral infection [Unknown]
  - Cough [Unknown]

NARRATIVE: CASE EVENT DATE: 201610
